FAERS Safety Report 9732882 (Version 1)
Quarter: 2013Q4

REPORT INFORMATION
  Report Type: Spontaneous
  Country: GB (occurrence: GB)
  Receive Date: 20131205
  Receipt Date: 20131205
  Transmission Date: 20140711
  Serious: Yes (Other)
  Sender: FDA-Public Use
  Company Number: GB-SA-2013SA123247

PATIENT
  Age: 89 Year
  Sex: Male

DRUGS (2)
  1. DOCETAXEL [Suspect]
     Indication: PROSTATE CANCER
     Dosage: APPROXIMATELY 12MG (CHEMO BAG WAS 100MLS = 56MG, 22MLS HAD BEEN INFUSED)
     Route: 042
     Dates: start: 20131114, end: 20131114
  2. DEXAMETHASONE [Concomitant]
     Dosage: PRE MEDICATION

REACTIONS (8)
  - Head discomfort [Recovered/Resolved with Sequelae]
  - Asthenopia [Unknown]
  - Feeling abnormal [Unknown]
  - Unresponsive to stimuli [Recovered/Resolved]
  - Vision blurred [Recovered/Resolved with Sequelae]
  - Blood pressure decreased [Unknown]
  - Staring [Unknown]
  - Drooling [Unknown]
